FAERS Safety Report 6369090-3 (Version None)
Quarter: 2009Q3

REPORT INFORMATION
  Report Type: 
  Country: None (occurrence: None)
  Receive Date: 20090922
  Receipt Date: 20090917
  Transmission Date: 20100115
  Serious: Yes (Death)
  Sender: FDA-Public Use
  Company Number: PHHY2009IR40408

PATIENT

DRUGS (2)
  1. BASILIXIMAB [Suspect]
     Indication: RENAL TRANSPLANT
     Dosage: 20 MG, ONCE/SINGLE
  2. BASILIXIMAB [Suspect]
     Dosage: 20 MG, ONCE/SINGLE

REACTIONS (1)
  - MYOCARDIAL INFARCTION [None]
